FAERS Safety Report 7088022-6 (Version None)
Quarter: 2010Q4

REPORT INFORMATION
  Report Type: 
  Country: None (occurrence: None)
  Receive Date: 20101108
  Receipt Date: 20101014
  Transmission Date: 20110411
  Serious: Yes (Hospitalization, Other)
  Sender: FDA-Public Use
  Company Number: FR-CELGENEUS-056-21880-10101463

PATIENT
  Sex: Female
  Weight: 53 kg

DRUGS (10)
  1. REVLIMID [Suspect]
     Indication: MULTIPLE MYELOMA
     Route: 048
     Dates: start: 20090611
  2. REVLIMID [Suspect]
     Route: 048
     Dates: start: 20100802, end: 20100807
  3. DEXAMETHASONE [Suspect]
     Indication: MULTIPLE MYELOMA
     Route: 051
     Dates: start: 20090611
  4. DEXAMETHASONE [Suspect]
     Route: 048
     Dates: start: 20100707
  5. DEXAMETHASONE [Suspect]
     Route: 051
     Dates: start: 20100217, end: 20100414
  6. VELCADE [Suspect]
     Indication: MULTIPLE MYELOMA
     Route: 051
     Dates: start: 20100216
  7. VELCADE [Suspect]
     Route: 051
     Dates: start: 20100706, end: 20100713
  8. KARDEGIC [Concomitant]
     Indication: THROMBOSIS PROPHYLAXIS
     Route: 065
  9. ZOLEDRONIC ACID [Concomitant]
     Indication: BONE DISORDER
     Route: 051
     Dates: start: 20100413, end: 20100802
  10. DARBEPOETIN ALFA [Concomitant]
     Route: 058
     Dates: start: 20100101, end: 20100807

REACTIONS (4)
  - COLITIS ISCHAEMIC [None]
  - FLANK PAIN [None]
  - INFLAMMATION [None]
  - RECTAL HAEMORRHAGE [None]
